FAERS Safety Report 10178094 (Version 1)
Quarter: 2014Q2

REPORT INFORMATION
  Report Type: Spontaneous
  Country: CH (occurrence: CH)
  Receive Date: 20140518
  Receipt Date: 20140518
  Transmission Date: 20141212
  Serious: Yes (Hospitalization)
  Sender: FDA-Public Use
  Company Number: CH-MERCK-1405CHE008085

PATIENT
  Age: 81 Year
  Sex: Male

DRUGS (5)
  1. REMERON [Suspect]
     Dosage: HALF A TABLET DAILY
     Route: 048
     Dates: start: 20140324, end: 20140325
  2. FLURAZEPAM [Suspect]
     Indication: SLEEP DISORDER
     Dosage: 30 MG, BID
     Route: 048
     Dates: end: 20140323
  3. VALSARTAN [Concomitant]
  4. LEVODOPA [Concomitant]
  5. PHENPROCOUMON [Concomitant]

REACTIONS (4)
  - Disorientation [Recovered/Resolved]
  - Toxicity to various agents [Recovered/Resolved]
  - Stupor [Recovered/Resolved]
  - Dyspnoea [Recovered/Resolved]
